FAERS Safety Report 8567383-2 (Version None)
Quarter: 2012Q3

REPORT INFORMATION
  Report Type: 
  Country: None (occurrence: None)
  Receive Date: 20120803
  Receipt Date: 20120801
  Transmission Date: 20120928
  Serious: Yes (Life-Threatening, Other)
  Sender: FDA-Public Use
  Company Number: PHHY2010JP82178

PATIENT
  Sex: Female

DRUGS (42)
  1. PERPHENAZINE [Concomitant]
     Dosage: 4 MG, UNK
     Route: 048
  2. RISPERIDONE [Concomitant]
     Dosage: 6 MG, UNK
     Route: 048
  3. PEROSPIRONE HYDROCHLORIDE [Concomitant]
     Dosage: UNK UKN, UNK
     Route: 048
  4. LEVOMEPROMAZINE MALEATE [Concomitant]
     Dosage: 15 MG, UNK
     Route: 048
  5. AKINETON [Concomitant]
     Indication: SCHIZOPHRENIA
     Dosage: 3 MG, UNK
     Route: 048
  6. CLOZARIL [Suspect]
     Dosage: 100 MG
     Route: 048
     Dates: start: 20100818, end: 20100820
  7. QUETIAPINE FUMARATE [Concomitant]
     Dosage: UNK UKN, UNK
     Route: 048
  8. DEPAKENE [Concomitant]
     Dosage: 800 MG, UNK
     Route: 048
  9. CLOZARIL [Suspect]
     Dosage: 175 MG
     Route: 048
     Dates: start: 20100815, end: 20100817
  10. PURSENNIDE [Concomitant]
     Indication: SCHIZOPHRENIA
     Dosage: 12 MG, UNK
     Route: 048
     Dates: start: 20100809
  11. OLANZAPINE [Concomitant]
     Dosage: 15 MG, UNK
     Route: 048
  12. OLANZAPINE [Concomitant]
     Dosage: 20 MG, UNK
     Route: 048
  13. LEXOTAN [Concomitant]
     Indication: SCHIZOPHRENIA
     Dosage: 6 MG, UNK
     Route: 048
  14. SILECE [Concomitant]
     Dosage: 4 MG, UNK
     Route: 048
  15. DEPAKENE [Concomitant]
     Indication: SCHIZOPHRENIA
     Dosage: 400 MG, UNK
     Route: 048
     Dates: start: 20100917
  16. CLOZARIL [Suspect]
     Indication: SCHIZOPHRENIA
     Dosage: 12.5 MG
  17. CLOZARIL [Suspect]
     Dosage: 50 MG
     Route: 048
     Dates: start: 20100730, end: 20100801
  18. BROMPERIDOL [Concomitant]
     Dosage: 2 MG, UNK
     Route: 048
  19. LEVOMEPROMAZINE MALEATE [Concomitant]
     Dosage: 10 MG, UNK
     Route: 048
     Dates: start: 20100729
  20. LEVOMEPROMAZINE MALEATE [Concomitant]
     Dosage: 10 MG, UNK
     Route: 048
     Dates: end: 20101006
  21. MEILAX [Concomitant]
     Indication: SCHIZOPHRENIA
     Dosage: 4 MG, UNK
     Route: 048
     Dates: start: 20100814
  22. ALMARL [Concomitant]
     Indication: SCHIZOPHRENIA
     Dosage: 20 MG, UNK
     Route: 048
  23. MAGMITT [Concomitant]
     Dosage: 1500 MG, UNK
     Route: 048
  24. CLOZARIL [Suspect]
     Dosage: 25 MG DAILY
     Route: 048
     Dates: start: 20100729, end: 20100729
  25. CLOZARIL [Suspect]
     Route: 048
     Dates: start: 20100802, end: 20100804
  26. CLOZARIL [Suspect]
     Dosage: 75 MG
     Route: 048
     Dates: start: 20100805, end: 20100806
  27. CLOZARIL [Suspect]
     Dosage: 5 MG
     Route: 048
     Dates: start: 20100910, end: 20100914
  28. LEVOMEPROMAZINE MALEATE [Concomitant]
     Dosage: 5 MG, UNK
     Route: 048
  29. AKINETON [Concomitant]
     Dosage: 2 MG, UNK
     Route: 048
  30. MAGMITT [Concomitant]
     Indication: SCHIZOPHRENIA
     Dosage: 990 MG, UNK
     Route: 048
     Dates: start: 20100806
  31. CLOZARIL [Suspect]
     Dosage: 100 MG
     Route: 048
     Dates: start: 20100807, end: 20100808
  32. TIMIPERONE [Concomitant]
     Dosage: UNK UKN, UNK
     Route: 048
  33. ARIPIPRAZOLE [Concomitant]
     Dosage: 24 MG, UNK
  34. BLONANSERIN [Concomitant]
     Dosage: UNK UKN, UNK
  35. LEVOMEPROMAZINE MALEATE [Concomitant]
     Dosage: 25 MG, UNK
     Route: 048
  36. OLANZAPINE [Concomitant]
     Dosage: 10 MG, UNK
     Route: 048
  37. SILECE [Concomitant]
     Dosage: 3 MG, UNK
     Route: 048
  38. CLOZARIL [Suspect]
     Dosage: 125 MG
     Route: 048
     Dates: start: 20100809, end: 20100811
  39. CLOZARIL [Suspect]
     Dosage: 150 MG
     Route: 048
     Dates: start: 20100812, end: 20100814
  40. AKINETON [Concomitant]
     Dosage: 4 MG, UNK
     Route: 048
  41. MEILAX [Concomitant]
     Dosage: 2 MG, UNK
     Route: 048
  42. SILECE [Concomitant]
     Indication: SCHIZOPHRENIA
     Dosage: 2 MG, UNK
     Route: 048

REACTIONS (14)
  - NEUTROPHIL COUNT DECREASED [None]
  - AGGRESSION [None]
  - THIRST [None]
  - PLEURISY [None]
  - PLEURAL EFFUSION [None]
  - PLATELET COUNT DECREASED [None]
  - IRRITABILITY [None]
  - WHITE BLOOD CELL COUNT DECREASED [None]
  - HEPATIC FUNCTION ABNORMAL [None]
  - PYREXIA [None]
  - C-REACTIVE PROTEIN INCREASED [None]
  - ATELECTASIS [None]
  - ANGER [None]
  - AGITATION [None]
